FAERS Safety Report 10086464 (Version 1)
Quarter: 2014Q2

REPORT INFORMATION
  Report Type: Spontaneous
  Country: FR (occurrence: FR)
  Receive Date: 20140418
  Receipt Date: 20140418
  Transmission Date: 20141212
  Serious: Yes (Life-Threatening, Hospitalization)
  Sender: FDA-Public Use
  Company Number: FR-BRISTOL-MYERS SQUIBB COMPANY-20610937

PATIENT
  Age: 79 Year
  Sex: Male
  Weight: 74 kg

DRUGS (1)
  1. HYDREA CAPS 500 MG [Suspect]
     Indication: ESSENTIAL THROMBOCYTHAEMIA
     Dosage: 6 TIMES IN A WEEK ORALLY
     Route: 048
     Dates: start: 2008, end: 20140321

REACTIONS (9)
  - Rectal haemorrhage [Unknown]
  - Melaena [Unknown]
  - Septic shock [Unknown]
  - Appendicitis [Unknown]
  - Peritonitis [Unknown]
  - Renal failure [Unknown]
  - Leukopenia [Recovering/Resolving]
  - Neutropenia [Not Recovered/Not Resolved]
  - Thrombocytopenia [Not Recovered/Not Resolved]
